FAERS Safety Report 7170922-X (Version None)
Quarter: 2010Q4

REPORT INFORMATION
  Report Type: 
  Country: None (occurrence: None)
  Receive Date: 20101217
  Receipt Date: 20101206
  Transmission Date: 20110411
  Serious: Yes (Hospitalization, Other)
  Sender: FDA-Public Use
  Company Number: US-CELGENEUS-163-20785-10120732

PATIENT
  Sex: Male

DRUGS (17)
  1. THALOMID [Suspect]
     Indication: MULTIPLE MYELOMA
     Route: 048
     Dates: start: 20100701, end: 20100830
  2. DECADRON [Concomitant]
     Route: 065
     Dates: start: 20100701
  3. PREDNISONE [Concomitant]
     Route: 065
  4. ZOLOFT [Concomitant]
     Route: 065
  5. LORAZEPAM [Concomitant]
     Route: 065
  6. ASPIRIN [Concomitant]
     Route: 065
  7. COREG [Concomitant]
     Route: 065
  8. LASIX [Concomitant]
     Route: 065
  9. LASIX [Concomitant]
     Route: 065
  10. PRILOSEC [Concomitant]
     Route: 065
  11. OXYCODONE HCL [Concomitant]
     Route: 065
  12. POTASSIUM [Concomitant]
     Route: 065
  13. COMPAZINE [Concomitant]
     Route: 065
  14. COUMADIN [Concomitant]
     Dosage: 2.5-5
     Route: 065
  15. SPIRONOLACTONE [Concomitant]
     Route: 065
  16. FLOMAX [Concomitant]
     Route: 065
  17. AVODART [Concomitant]
     Route: 065

REACTIONS (4)
  - CARDIAC FAILURE CONGESTIVE [None]
  - DRUG INEFFECTIVE [None]
  - FLUID RETENTION [None]
  - RENAL FAILURE ACUTE [None]
